FAERS Safety Report 13207918 (Version 1)
Quarter: 2017Q1

REPORT INFORMATION
  Report Type: Spontaneous
  Country: NL (occurrence: NL)
  Receive Date: 20170209
  Receipt Date: 20170209
  Transmission Date: 20170428
  Serious: Yes (Other)
  Sender: FDA-Public Use
  Company Number: NL-JNJFOC-20170201771

PATIENT
  Age: 74 Year
  Sex: Male
  Weight: 67 kg

DRUGS (4)
  1. FIRMAGON [Concomitant]
     Active Substance: DEGARELIX ACETATE
     Route: 065
  2. ZYTIGA [Suspect]
     Active Substance: ABIRATERONE ACETATE
     Indication: HORMONE-REFRACTORY PROSTATE CANCER
     Route: 048
     Dates: start: 20161220, end: 20170119
  3. DOCETAXEL. [Concomitant]
     Active Substance: DOCETAXEL
     Route: 065
  4. PREDNISONE. [Concomitant]
     Active Substance: PREDNISONE
     Route: 048
     Dates: start: 20161220, end: 20170119

REACTIONS (4)
  - Hyperkalaemia [Recovered/Resolved]
  - Nausea [Recovered/Resolved]
  - Haemoglobin decreased [Unknown]
  - Vomiting [Unknown]

NARRATIVE: CASE EVENT DATE: 20170103
